FAERS Safety Report 9458757 (Version 1)
Quarter: 2013Q3

REPORT INFORMATION
  Report Type: Spontaneous
  Country: US (occurrence: US)
  Receive Date: 20130814
  Receipt Date: 20130814
  Transmission Date: 20140515
  Serious: No
  Sender: FDA-Public Use
  Company Number: US-TARO-2013P1004780

PATIENT
  Age: 69 Year
  Sex: Female

DRUGS (3)
  1. FLUOCINONIDE CREAM USP 0.05% [Suspect]
     Indication: RASH
     Route: 061
     Dates: start: 20130403
  2. LEVOTHYROXINE [Concomitant]
  3. ESCITALOPRAM [Concomitant]

REACTIONS (2)
  - Abdominal pain upper [Not Recovered/Not Resolved]
  - Gastroenteritis viral [Not Recovered/Not Resolved]
